FAERS Safety Report 16365282 (Version 3)
Quarter: 2019Q3

REPORT INFORMATION
  Report Type: Spontaneous
  Country: CH (occurrence: CH)
  Receive Date: 20190529
  Receipt Date: 20190719
  Transmission Date: 20191004
  Serious: No
  Sender: FDA-Public Use
  Company Number: CH-ASTELLAS-2019US022694

PATIENT
  Age: 72 Year
  Sex: Male

DRUGS (2)
  1. CARDIOASPIRIN [Concomitant]
     Active Substance: ASPIRIN
     Indication: PRODUCT USED FOR UNKNOWN INDICATION
     Dosage: 1 DF (TABLET), ONCE DAILY
     Route: 065
  2. BETMIGA [Suspect]
     Active Substance: MIRABEGRON
     Indication: BENIGN PROSTATIC HYPERPLASIA
     Dosage: 50 MG, ONCE DAILY (EVENING)
     Route: 065
     Dates: start: 200811, end: 201903

REACTIONS (7)
  - Rhinalgia [Recovering/Resolving]
  - Rhinorrhoea [Recovering/Resolving]
  - Fatigue [Recovered/Resolved]
  - Drug ineffective for unapproved indication [Unknown]
  - Sneezing [Recovering/Resolving]
  - Dyspnoea [Recovered/Resolved]
  - Paraesthesia [Recovering/Resolving]
